FAERS Safety Report 23323130 (Version 1)
Quarter: 2023Q4

REPORT INFORMATION
  Report Type: Spontaneous
  Country: US (occurrence: None)
  Receive Date: 20231220
  Receipt Date: 20231220
  Transmission Date: 20240109
  Serious: No
  Sender: FDA-Public Use
  Company Number: US-ROCHE-3278710

PATIENT
  Sex: Male
  Weight: 104.7 kg

DRUGS (19)
  1. RITUXAN [Suspect]
     Active Substance: RITUXIMAB
     Indication: Diffuse large B-cell lymphoma recurrent
     Dosage: GIVEN AS PART OF RCEOP ;ONGOING: NO
     Route: 065
     Dates: start: 202102
  2. RITUXAN [Suspect]
     Active Substance: RITUXIMAB
     Dosage: GIVEN AS PART OF RGEM-OX ;ONGOING: NO
     Route: 065
     Dates: start: 202105
  3. RITUXAN [Suspect]
     Active Substance: RITUXIMAB
     Dosage: GIVEN AS PART OF POLIVY, BENDAMUSTINE AND RITUXAN ;ONGOING: NO
     Route: 065
     Dates: start: 202110
  4. RITUXAN [Suspect]
     Active Substance: RITUXIMAB
     Dosage: GIVEN AS PART OF RICE ;ONGOING: NO
     Route: 065
     Dates: start: 202212
  5. POLIVY [Suspect]
     Active Substance: POLATUZUMAB VEDOTIN-PIIQ
     Indication: Diffuse large B-cell lymphoma recurrent
     Route: 065
     Dates: start: 202110
  6. POLIVY [Suspect]
     Active Substance: POLATUZUMAB VEDOTIN-PIIQ
     Dosage: GIVEN AS PART OF POLIVY, BENDAMUSTINE, AND RITUXAN
     Route: 065
     Dates: start: 202110
  7. CYCLOPHOSPHAMIDE [Concomitant]
     Active Substance: CYCLOPHOSPHAMIDE
     Indication: Diffuse large B-cell lymphoma recurrent
     Dates: start: 202102
  8. ETOPOSIDE [Concomitant]
     Active Substance: ETOPOSIDE
     Indication: Diffuse large B-cell lymphoma recurrent
     Dates: start: 202102
  9. ETOPOSIDE [Concomitant]
     Active Substance: ETOPOSIDE
     Dates: start: 202212
  10. PREDNISONE [Concomitant]
     Active Substance: PREDNISONE
     Indication: Diffuse large B-cell lymphoma recurrent
     Dates: start: 202102
  11. GEMCITABINE [Concomitant]
     Active Substance: GEMCITABINE
     Indication: Diffuse large B-cell lymphoma recurrent
     Dates: start: 202105
  12. OXALIPLATIN [Concomitant]
     Active Substance: OXALIPLATIN
     Indication: Diffuse large B-cell lymphoma recurrent
     Dates: start: 202105
  13. BENDAMUSTINE [Concomitant]
     Active Substance: BENDAMUSTINE
     Indication: Diffuse large B-cell lymphoma recurrent
     Dates: start: 202110
  14. IFOSFAMIDE [Concomitant]
     Active Substance: IFOSFAMIDE
     Indication: Diffuse large B-cell lymphoma recurrent
     Dates: start: 202212
  15. CARBOPLATIN [Concomitant]
     Active Substance: CARBOPLATIN
     Indication: Diffuse large B-cell lymphoma recurrent
     Dates: start: 202212
  16. LONCASTUXIMAB TESIRINE [Concomitant]
     Active Substance: LONCASTUXIMAB TESIRINE
     Indication: Diffuse large B-cell lymphoma recurrent
     Dates: start: 202301
  17. YESCARTA [Concomitant]
     Active Substance: AXICABTAGENE CILOLEUCEL
     Indication: Diffuse large B-cell lymphoma recurrent
     Dates: start: 202111
  18. DOXORUBICIN [Concomitant]
     Active Substance: DOXORUBICIN
     Indication: Diffuse large B-cell lymphoma recurrent
     Dates: start: 202102
  19. DOXORUBICIN [Concomitant]
     Active Substance: DOXORUBICIN
     Dates: start: 202212

REACTIONS (1)
  - Disease progression [Not Recovered/Not Resolved]
